FAERS Safety Report 19200981 (Version 1)
Quarter: 2021Q2

REPORT INFORMATION
  Report Type: Spontaneous
  Country: US (occurrence: US)
  Receive Date: 20210430
  Receipt Date: 20210430
  Transmission Date: 20210717
  Serious: Yes (Hospitalization, Other)
  Sender: FDA-Public Use
  Company Number: US-NOVOPROD-806753

PATIENT
  Sex: Male

DRUGS (2)
  1. NOVOLOG [Suspect]
     Active Substance: INSULIN ASPART
     Indication: PRODUCT USED FOR UNKNOWN INDICATION
     Dosage: SLIDING SCALE
     Route: 058
     Dates: start: 2010, end: 20210420
  2. LEVEMIR [Suspect]
     Active Substance: INSULIN DETEMIR
     Indication: PRODUCT USED FOR UNKNOWN INDICATION
     Dosage: 20 UNITS,QD
     Route: 058
     Dates: start: 2010

REACTIONS (5)
  - Dialysis [Not Recovered/Not Resolved]
  - Leg amputation [Unknown]
  - Leg amputation [Unknown]
  - Poor peripheral circulation [Not Recovered/Not Resolved]
  - Finger amputation [Unknown]

NARRATIVE: CASE EVENT DATE: 2013
